FAERS Safety Report 11896230 (Version 1)
Quarter: 2016Q1

REPORT INFORMATION
  Report Type: Spontaneous
  Country: US (occurrence: US)
  Receive Date: 20160107
  Receipt Date: 20160107
  Transmission Date: 20160526
  Serious: No
  Sender: FDA-Public Use
  Company Number: US-ROCHE-1502137

PATIENT
  Sex: Female

DRUGS (5)
  1. RITUXAN [Suspect]
     Active Substance: RITUXIMAB
     Indication: PRIMARY PROGRESSIVE MULTIPLE SCLEROSIS
     Route: 065
  2. BETASERON [Concomitant]
     Active Substance: INTERFERON BETA-1B
     Indication: PRIMARY PROGRESSIVE MULTIPLE SCLEROSIS
  3. NOVANTRONE [Concomitant]
     Active Substance: MITOXANTRONE HYDROCHLORIDE
     Indication: PRIMARY PROGRESSIVE MULTIPLE SCLEROSIS
  4. NALTREXONE [Concomitant]
     Active Substance: NALTREXONE
     Indication: PRIMARY PROGRESSIVE MULTIPLE SCLEROSIS
  5. COPAXONE [Concomitant]
     Active Substance: GLATIRAMER ACETATE
     Indication: PRIMARY PROGRESSIVE MULTIPLE SCLEROSIS

REACTIONS (1)
  - Drug ineffective [Unknown]
